FAERS Safety Report 10034328 (Version 1)
Quarter: 2014Q1

REPORT INFORMATION
  Report Type: Spontaneous
  Country: GB (occurrence: GB)
  Receive Date: 20140325
  Receipt Date: 20140325
  Transmission Date: 20141002
  Serious: Yes (Other)
  Sender: FDA-Public Use
  Company Number: GB-TEVA-470113ISR

PATIENT
  Age: 25 Year
  Sex: Female
  Weight: 56 kg

DRUGS (1)
  1. AMOXICILLIN [Suspect]
     Dates: start: 20140311

REACTIONS (2)
  - Joint swelling [Recovered/Resolved]
  - Oedema peripheral [Unknown]
